FAERS Safety Report 5030017-8 (Version None)
Quarter: 2006Q2

REPORT INFORMATION
  Report Type: 
  Country: None (occurrence: None)
  Receive Date: 20060504
  Receipt Date: 20051220
  Transmission Date: 20061013
  Serious: No
  Sender: FDA-Public Use
  Company Number: 200513043BWH

PATIENT
  Age: 76 Year
  Sex: Male

DRUGS (3)
  1. LEVITRA [Suspect]
     Indication: ERECTILE DYSFUNCTION
     Dosage: QOD, ORAL
     Route: 048
     Dates: start: 20051125, end: 20051210
  2. NOVOLIN R [Concomitant]
  3. LANTUS [Concomitant]

REACTIONS (1)
  - ERECTILE DYSFUNCTION [None]
